FAERS Safety Report 4310138-5 (Version None)
Quarter: 2004Q1

REPORT INFORMATION
  Report Type: 
  Country: None (occurrence: None)
  Receive Date: 20040227
  Receipt Date: 20040108
  Transmission Date: 20041129
  Serious: No
  Sender: FDA-Public Use
  Company Number: FABR-10426

PATIENT
  Age: 34 Year
  Sex: Male
  Weight: 58.514 kg

DRUGS (1)
  1. FABRAZYME [Suspect]
     Indication: FABRY'S DISEASE
     Dosage: 1 MG/KG QWKS IV
     Route: 042

REACTIONS (4)
  - DEAFNESS [None]
  - NAUSEA [None]
  - PAIN [None]
  - WEIGHT GAIN POOR [None]
